FAERS Safety Report 14340294 (Version 2)
Quarter: 2019Q1

REPORT INFORMATION
  Report Type: Report from Study
  Country: ES (occurrence: ES)
  Receive Date: 20180101
  Receipt Date: 20190114
  Transmission Date: 20190417
  Serious: Yes (Other)
  Sender: FDA-Public Use
  Company Number: ES-ROCHE-2045772

PATIENT
  Sex: Female

DRUGS (4)
  1. PACLITAXEL. [Suspect]
     Active Substance: PACLITAXEL
     Indication: HER-2 POSITIVE BREAST CANCER
     Dosage: (3 WEEKS ON/1 WEEK OFF)
     Route: 042
  2. TRASTUZUMAB. [Suspect]
     Active Substance: TRASTUZUMAB
     Route: 042
  3. DASATINIB. [Suspect]
     Active Substance: DASATINIB
     Indication: HER-2 POSITIVE BREAST CANCER
     Route: 048
  4. TRASTUZUMAB. [Suspect]
     Active Substance: TRASTUZUMAB
     Indication: HER-2 POSITIVE BREAST CANCER
     Route: 042

REACTIONS (9)
  - Ejection fraction decreased [Unknown]
  - Fatigue [Unknown]
  - Hypertension [Unknown]
  - Peripheral sensory neuropathy [Unknown]
  - Hypophosphataemia [Unknown]
  - Angina pectoris [Unknown]
  - Hyponatraemia [Unknown]
  - Hypocalcaemia [Unknown]
  - Neutropenia [Unknown]
